FAERS Safety Report 9684348 (Version 1)
Quarter: 2013Q4

REPORT INFORMATION
  Report Type: Report from Study
  Country: US (occurrence: US)
  Receive Date: 20131112
  Receipt Date: 20131112
  Transmission Date: 20140711
  Serious: Yes (Other)
  Sender: FDA-Public Use
  Company Number: US-ROCHE-1299997

PATIENT
  Age: 34 Year
  Sex: Female
  Weight: 76.4 kg

DRUGS (8)
  1. RITUXAN [Suspect]
     Indication: RHEUMATOID ARTHRITIS
     Route: 042
     Dates: start: 20131101, end: 20131101
  2. CLONAZEPAM [Suspect]
     Indication: PRODUCT USED FOR UNKNOWN INDICATION
     Route: 065
  3. SERTRALINE [Concomitant]
  4. DILACOR XR (UNITED STATES) [Concomitant]
  5. ALDOMET [Concomitant]
  6. VENLAFAXINE [Concomitant]
  7. ACETAMINOPHEN [Concomitant]
     Route: 065
  8. SOLU-MEDROL [Concomitant]
     Route: 065

REACTIONS (4)
  - Pruritus [Unknown]
  - Rash [Unknown]
  - Urticaria [Unknown]
  - Rash erythematous [Unknown]
